FAERS Safety Report 8995667 (Version 1)
Quarter: 2013Q1

REPORT INFORMATION
  Report Type: Spontaneous
  Country: US (occurrence: US)
  Receive Date: 20130103
  Receipt Date: 20130103
  Transmission Date: 20140127
  Serious: No
  Sender: FDA-Public Use
  Company Number: US-ABBOTT-12P-163-0947990-00

PATIENT
  Sex: Female
  Weight: 74.91 kg

DRUGS (3)
  1. SYNTHROID [Suspect]
     Indication: THYROID DISORDER
     Dosage: 50 MCG DAILY
  2. ADVIL [Concomitant]
     Indication: ARTHRITIS
  3. ADVIL [Concomitant]
     Indication: HEADACHE

REACTIONS (1)
  - Vitamin D deficiency [Unknown]
